FAERS Safety Report 19912913 (Version 3)
Quarter: 2021Q4

REPORT INFORMATION
  Report Type: Report from Study
  Country: US (occurrence: US)
  Receive Date: 20211004
  Receipt Date: 20211223
  Transmission Date: 20220303
  Serious: Yes (Other)
  Sender: FDA-Public Use
  Company Number: US-BAYER-2021-178999

PATIENT
  Age: 55 Year
  Sex: Female

DRUGS (7)
  1. NEXAVAR [Suspect]
     Active Substance: SORAFENIB
     Indication: Desmoid tumour
     Dosage: 400 MG, QD DAILY
     Route: 048
     Dates: start: 20210709
  2. NEXAVAR [Suspect]
     Active Substance: SORAFENIB
     Indication: Soft tissue sarcoma
  3. NEXAVAR [Suspect]
     Active Substance: SORAFENIB
     Indication: Connective tissue neoplasm
  4. PURE BAKING SODA [Concomitant]
     Active Substance: SODIUM BICARBONATE
     Indication: Stomatitis
     Dosage: UNK
  5. UREA [Concomitant]
     Active Substance: UREA
     Indication: Dry skin
     Dosage: UNK
  6. UREA [Concomitant]
     Active Substance: UREA
     Indication: Nipple pain
  7. UREA [Concomitant]
     Active Substance: UREA
     Indication: Pain in extremity

REACTIONS (29)
  - Neoplasm skin [Recovered/Resolved]
  - Palmoplantar keratoderma [Recovered/Resolved]
  - Skin papilloma [None]
  - Actinic keratosis [None]
  - Actinic keratosis [None]
  - Haemorrhoids [None]
  - Diarrhoea [Not Recovered/Not Resolved]
  - Flushing [Not Recovered/Not Resolved]
  - Pain of skin [Not Recovered/Not Resolved]
  - Stomatitis [Not Recovered/Not Resolved]
  - Fatigue [Not Recovered/Not Resolved]
  - Off label use [None]
  - Rash [Not Recovered/Not Resolved]
  - Blister [Not Recovered/Not Resolved]
  - Pain in extremity [Not Recovered/Not Resolved]
  - Flushing [Recovered/Resolved]
  - Rosacea [Recovered/Resolved]
  - Stomatitis [Recovered/Resolved]
  - Dry skin [Recovered/Resolved]
  - Nipple pain [Recovered/Resolved]
  - Pain in extremity [Recovered/Resolved]
  - Palmoplantar keratoderma [Not Recovered/Not Resolved]
  - Flushing [Not Recovered/Not Resolved]
  - Erythema [None]
  - Gingival bleeding [Not Recovered/Not Resolved]
  - Hypertension [Recovered/Resolved]
  - Oral pain [Not Recovered/Not Resolved]
  - Glossodynia [Not Recovered/Not Resolved]
  - Increased tendency to bruise [Not Recovered/Not Resolved]

NARRATIVE: CASE EVENT DATE: 20210701
